FAERS Safety Report 5198366-0 (Version None)
Quarter: 2006Q4

REPORT INFORMATION
  Report Type: 
  Country: None (occurrence: None)
  Receive Date: 20061228
  Receipt Date: 20061228
  Transmission Date: 20070319
  Serious: No
  Sender: FDA-Public Use
  Company Number: None

PATIENT
  Age: 79 Year
  Sex: Male
  Weight: 71 kg

DRUGS (6)
  1. DIGOXIN [Suspect]
     Indication: ATRIAL FIBRILLATION
     Dosage: 250 MCG DAILY  ~ 1 MONTH
  2. AMIODARONE HCL [Suspect]
     Dosage: 200 MG PO DAILY
     Route: 048
  3. COMBIVENT [Concomitant]
  4. FLOMAX [Concomitant]
  5. TYLENOL [Concomitant]
  6. FLOVENT [Concomitant]

REACTIONS (4)
  - BRADYCARDIA [None]
  - HEART RATE IRREGULAR [None]
  - SYNCOPE [None]
  - THERAPEUTIC AGENT TOXICITY [None]
